FAERS Safety Report 22653741 (Version 1)
Quarter: 2023Q2

REPORT INFORMATION
  Report Type: Report from Study
  Country: EG (occurrence: EG)
  Receive Date: 20230629
  Receipt Date: 20230629
  Transmission Date: 20230722
  Serious: Yes (Other)
  Sender: FDA-Public Use
  Company Number: EG-002147023-NVSC2023EG147213

PATIENT
  Age: 12 Year
  Sex: Female

DRUGS (4)
  1. OMNITROPE [Suspect]
     Active Substance: SOMATROPIN
     Indication: Growth hormone deficiency
     Dosage: 0.9 MG, QD
     Route: 058
     Dates: start: 20210611
  2. OMNITROPE [Suspect]
     Active Substance: SOMATROPIN
     Dosage: 1.1 MG, QD
     Route: 058
     Dates: end: 202212
  3. ZINC [Concomitant]
     Active Substance: ZINC
     Indication: Nutritional supplementation
     Dosage: UNK, QD (5CM/DAY)
     Route: 065
  4. VIDROP [Concomitant]
     Indication: Nutritional supplementation
     Dosage: UNK, QD (ONE FILLED DROPPER)
     Route: 065

REACTIONS (2)
  - Growth retardation [Not Recovered/Not Resolved]
  - Product availability issue [Not Recovered/Not Resolved]

NARRATIVE: CASE EVENT DATE: 20221201
